FAERS Safety Report 9358627 (Version 2)
Quarter: 2013Q3

REPORT INFORMATION
  Report Type: Spontaneous
  Country: US (occurrence: US)
  Receive Date: 20130620
  Receipt Date: 20130723
  Transmission Date: 20140515
  Serious: Yes (Hospitalization)
  Sender: FDA-Public Use
  Company Number: US-GLAXOSMITHKLINE-A1027124A

PATIENT
  Age: 8 Year
  Sex: Female

DRUGS (4)
  1. ADVAIR [Suspect]
     Indication: ASTHMA
     Dosage: 2PUFF TWICE PER DAY
     Route: 055
     Dates: start: 2009
  2. FLOVENT [Suspect]
     Indication: ASTHMA
     Route: 055
  3. ZYRTEC [Concomitant]
  4. QVAR [Concomitant]

REACTIONS (6)
  - Asthma [Recovering/Resolving]
  - Pulmonary function test decreased [Recovering/Resolving]
  - Dyspnoea [Recovering/Resolving]
  - Expired drug administered [Recovered/Resolved]
  - Drug ineffective [Recovering/Resolving]
  - Product quality issue [Unknown]
